FAERS Safety Report 20602020 (Version 1)
Quarter: 2022Q1

REPORT INFORMATION
  Report Type: Spontaneous
  Country: TW (occurrence: TW)
  Receive Date: 20220316
  Receipt Date: 20220316
  Transmission Date: 20220424
  Serious: Yes (Death, Life-Threatening, Hospitalization, Other)
  Sender: FDA-Public Use
  Company Number: TW-ABBVIE-22K-153-4317877-00

PATIENT
  Age: 49 Year
  Sex: Female
  Weight: 39 kg

DRUGS (20)
  1. VALPROATE SODIUM [Suspect]
     Active Substance: VALPROATE SODIUM
     Indication: Seizure
     Route: 041
     Dates: start: 20200408, end: 20200428
  2. TRANEXAMIC ACID [Suspect]
     Active Substance: TRANEXAMIC ACID
     Indication: Haemostasis
     Route: 042
     Dates: start: 20200416, end: 20200419
  3. TRANEXAMIC ACID [Suspect]
     Active Substance: TRANEXAMIC ACID
     Route: 042
     Dates: start: 20200420, end: 20200428
  4. FLUCONAZOLE [Suspect]
     Active Substance: FLUCONAZOLE
     Indication: Candida infection
     Route: 042
     Dates: start: 20200414, end: 20200420
  5. CEFEPIME HYDROCHLORIDE [Suspect]
     Active Substance: CEFEPIME HYDROCHLORIDE
     Indication: Meningitis
     Route: 042
     Dates: start: 20200406, end: 20200416
  6. LINEZOLID [Suspect]
     Active Substance: LINEZOLID
     Indication: Pneumonitis
     Route: 042
     Dates: start: 20200420, end: 20200428
  7. LINEZOLID [Suspect]
     Active Substance: LINEZOLID
     Indication: Arthritis bacterial
  8. TARGOCID [Suspect]
     Active Substance: TEICOPLANIN
     Indication: Product used for unknown indication
     Route: 042
     Dates: start: 20200402, end: 20200418
  9. FAMOTIDINE [Suspect]
     Active Substance: FAMOTIDINE
     Indication: Anaemia
     Route: 048
     Dates: start: 20200328, end: 20200416
  10. PHENYTOIN SODIUM [Suspect]
     Active Substance: PHENYTOIN SODIUM
     Indication: Seizure
     Route: 041
     Dates: start: 20200407, end: 20200416
  11. PHENYTOIN SODIUM [Suspect]
     Active Substance: PHENYTOIN SODIUM
     Route: 041
     Dates: start: 20200416, end: 20200420
  12. MEROPENEM [Suspect]
     Active Substance: MEROPENEM
     Indication: Septic shock
     Route: 040
     Dates: start: 20200416, end: 20200428
  13. MEROPENEM [Suspect]
     Active Substance: MEROPENEM
     Indication: Staphylococcal bacteraemia
     Route: 041
     Dates: start: 20200416, end: 20200420
  14. MEROPENEM [Suspect]
     Active Substance: MEROPENEM
     Indication: Arthritis bacterial
  15. MEROPENEM [Suspect]
     Active Substance: MEROPENEM
     Indication: Pneumonitis
  16. MYCAMINE [Suspect]
     Active Substance: MICAFUNGIN SODIUM
     Indication: Pneumonitis
     Route: 040
     Dates: start: 20200420, end: 20200428
  17. MYCAMINE [Suspect]
     Active Substance: MICAFUNGIN SODIUM
     Indication: Arthritis bacterial
     Route: 041
     Dates: start: 20200416, end: 20200420
  18. LORAZEPAM [Concomitant]
     Active Substance: LORAZEPAM
     Indication: Product used for unknown indication
  19. TEICOPLANIN [Concomitant]
     Active Substance: TEICOPLANIN
     Indication: Product used for unknown indication
  20. CEFMETAZOLE [Concomitant]
     Active Substance: CEFMETAZOLE
     Indication: Product used for unknown indication

REACTIONS (1)
  - Stevens-Johnson syndrome [Fatal]

NARRATIVE: CASE EVENT DATE: 20200428
